FAERS Safety Report 5266791-5 (Version None)
Quarter: 2007Q1

REPORT INFORMATION
  Report Type: 
  Country: None (occurrence: None)
  Receive Date: 20070312
  Receipt Date: 20070227
  Transmission Date: 20070707
  Serious: Yes (Hospitalization)
  Sender: FDA-Public Use
  Company Number: 2007US000455

PATIENT
  Age: 68 Year
  Sex: Male

DRUGS (1)
  1. PROGRAF [Suspect]
     Indication: PROPHYLAXIS AGAINST TRANSPLANT REJECTION

REACTIONS (7)
  - ANOREXIA [None]
  - ASTHENIA [None]
  - GAIT DISTURBANCE [None]
  - IMMUNOSUPPRESSANT DRUG LEVEL INCREASED [None]
  - NAUSEA [None]
  - OEDEMA PERIPHERAL [None]
  - PNEUMONIA [None]
